FAERS Safety Report 9189261 (Version 1)
Quarter: 2013Q1

REPORT INFORMATION
  Report Type: Spontaneous
  Country: AU (occurrence: AU)
  Receive Date: 20130326
  Receipt Date: 20130326
  Transmission Date: 20140127
  Serious: Yes (Hospitalization)
  Sender: FDA-Public Use
  Company Number: AU-RANBAXY-2007US-08506

PATIENT
  Age: 15 Year
  Sex: Male
  Weight: 69 kg

DRUGS (6)
  1. MIDAZOLAM [Suspect]
     Indication: GENERAL ANAESTHESIA
     Dosage: UNK
     Route: 065
  2. FENTANYL [Suspect]
     Indication: GENERAL ANAESTHESIA
     Dosage: UNK
     Route: 065
  3. PROPOFOL [Suspect]
     Indication: GENERAL ANAESTHESIA
     Dosage: UNK
     Route: 065
  4. PARECOXIB [Concomitant]
     Indication: ANALGESIC THERAPY
     Dosage: UNK
     Route: 065
  5. PARACETAMOL [Concomitant]
     Indication: ANALGESIC THERAPY
     Dosage: UNK
     Route: 042
  6. SEVOFLURANE [Concomitant]
     Indication: ANAESTHESIA
     Dosage: UNK
     Route: 065

REACTIONS (1)
  - Hemiplegic migraine [Unknown]
